FAERS Safety Report 11699220 (Version 1)
Quarter: 2015Q4

REPORT INFORMATION
  Report Type: Spontaneous
  Country: US (occurrence: US)
  Receive Date: 20151104
  Receipt Date: 20151104
  Transmission Date: 20160304
  Serious: No
  Sender: FDA-Public Use
  Company Number: US-ANTARES PHARMA, INC.-2015-SPO-MX-0037

PATIENT
  Sex: Female

DRUGS (2)
  1. OTREXUP [Suspect]
     Active Substance: METHOTREXATE
     Indication: RHEUMATOID ARTHRITIS
     Dosage: 10 MG/0.4ML, QWK
     Dates: start: 20141002, end: 20141106
  2. OTREXUP [Suspect]
     Active Substance: METHOTREXATE
     Dosage: 15 MG/0.4ML, QWK
     Route: 058
     Dates: start: 20141106

REACTIONS (3)
  - Needle issue [None]
  - Device breakage [None]
  - Wrong technique in product usage process [None]
